FAERS Safety Report 5669045-8 (Version None)
Quarter: 2008Q1

REPORT INFORMATION
  Report Type: 
  Country: None (occurrence: None)
  Receive Date: 20080303
  Receipt Date: 20080310
  Transmission Date: 20080703
  Serious: Yes (Death)
  Sender: FDA-Public Use
  Company Number: US-BRACCO-000418

PATIENT
  Age: 69 Year
  Sex: Male
  Weight: 104 kg

DRUGS (4)
  1. MULTIHANCE [Suspect]
     Indication: NUCLEAR MAGNETIC RESONANCE IMAGING
     Route: 042
     Dates: start: 20080307, end: 20080307
  2. MULTIHANCE [Suspect]
     Indication: BACK PAIN
     Route: 042
     Dates: start: 20080307, end: 20080307
  3. EPINEPHRINE                        /00003901/ [Concomitant]
     Route: 065
     Dates: start: 20080307, end: 20080307
  4. DOPAMINE                           /00360701/ [Concomitant]
     Route: 065
     Dates: start: 20080307, end: 20080307

REACTIONS (2)
  - ANAPHYLACTOID REACTION [None]
  - CARDIAC ARREST [None]
